FAERS Safety Report 25989409 (Version 1)
Quarter: 2025Q4

REPORT INFORMATION
  Report Type: Spontaneous
  Country: US (occurrence: US)
  Receive Date: 20251103
  Receipt Date: 20251103
  Transmission Date: 20260117
  Serious: No
  Sender: PFIZER
  Company Number: US-PFIZER INC-202500215132

PATIENT
  Age: 64 Year
  Sex: Female

DRUGS (7)
  1. XELJANZ [Suspect]
     Active Substance: TOFACITINIB CITRATE
     Indication: Rheumatoid arthritis
     Dosage: 5 MG, 2X/DAY
     Dates: start: 202004
  2. ATENOLOL [Concomitant]
     Active Substance: ATENOLOL
     Dosage: 50 MG
  3. SULFASALAZINE [Concomitant]
     Active Substance: SULFASALAZINE
     Dosage: 500 MG
  4. LOSARTAN POTASSIUM [Concomitant]
     Active Substance: LOSARTAN POTASSIUM
     Dosage: 100 MG
  5. CALCIUM [Concomitant]
     Active Substance: CALCIUM
     Dosage: 600 MG
  6. MULTIVITAMIN [ASCORBIC ACID;CALCIUM PANTOTHENATE;CHROMIUM;COLECALCIFER [Concomitant]
     Dosage: UNK
  7. PLAQUENIL [Concomitant]
     Active Substance: HYDROXYCHLOROQUINE SULFATE
     Dosage: 200 MG

REACTIONS (1)
  - COVID-19 [Recovered/Resolved]
